FAERS Safety Report 19099909 (Version 2)
Quarter: 2021Q3

REPORT INFORMATION
  Report Type: Report from Study
  Country: US (occurrence: US)
  Receive Date: 20210407
  Receipt Date: 20210914
  Transmission Date: 20211014
  Serious: No
  Sender: FDA-Public Use
  Company Number: NVSC2021US071832

PATIENT
  Sex: Female

DRUGS (1)
  1. COSENTYX [Suspect]
     Active Substance: SECUKINUMAB
     Indication: ANKYLOSING SPONDYLITIS
     Dosage: 150 MG, QW (BENEATH THE SKIN)
     Route: 058

REACTIONS (9)
  - Nausea [Unknown]
  - Nasopharyngitis [Unknown]
  - Initial insomnia [Unknown]
  - Crying [Unknown]
  - Abdominal distension [Unknown]
  - Drug intolerance [Unknown]
  - Depression [Unknown]
  - Abdominal discomfort [Unknown]
  - Inappropriate schedule of product administration [Unknown]
